FAERS Safety Report 9042292 (Version 1)
Quarter: 2013Q1

REPORT INFORMATION
  Report Type: Report from Study
  Country: US (occurrence: US)
  Receive Date: 20130129
  Receipt Date: 20130129
  Transmission Date: 20140127
  Serious: No
  Sender: FDA-Public Use
  Company Number: US-ABBOTT-12P-163-0909066-00

PATIENT
  Age: 40 Year
  Sex: Female

DRUGS (18)
  1. HUMIRA 40 MG/0.8 ML PEN [Suspect]
     Indication: PSORIASIS
     Dates: start: 20120225
  2. MULTIVITAMINS [Concomitant]
     Indication: VITAMIN SUPPLEMENTATION
  3. FISH OIL [Concomitant]
     Indication: VITAMIN SUPPLEMENTATION
  4. CONCERTA [Concomitant]
     Indication: PRODUCT USED FOR UNKNOWN INDICATION
     Dosage: IN THE MORNING
  5. CYMBALTA [Concomitant]
     Indication: PAIN
     Dosage: 150 MG DAILY
  6. CYMBALTA [Concomitant]
     Indication: DEPRESSION
  7. LITHIUM [Concomitant]
     Indication: BIPOLAR II DISORDER
  8. PHENOBARBITAL [Concomitant]
     Indication: CONVULSION
     Dosage: AT BEDTIME
  9. ALLEGRA [Concomitant]
     Indication: HYPERSENSITIVITY
     Dosage: 180 MG DAILY
  10. AMITRIPTYLINE [Concomitant]
     Indication: IMPAIRED GASTRIC EMPTYING
     Dosage: 10 MG DAILY
  11. ABILIFY [Concomitant]
     Indication: DEPRESSION
     Dosage: 50 MG DAILY
  12. ALDACTONE [Concomitant]
     Indication: FLUSHING
     Dosage: 50 MG DAILY
  13. DOXYCYCLINE [Concomitant]
     Indication: ACNE
     Dosage: 3-4 TIMES A WEEK
  14. DOXYCYCLINE [Concomitant]
     Indication: ROSACEA
  15. DESONIDE [Concomitant]
     Indication: ROSACEA
  16. OLUX [Concomitant]
     Indication: PSORIASIS
     Dosage: FOAM
  17. ESTROGEN [Concomitant]
     Indication: HORMONE REPLACEMENT THERAPY
     Dosage: PATCH
  18. DEXILANT [Concomitant]
     Indication: GASTROOESOPHAGEAL REFLUX DISEASE

REACTIONS (3)
  - Nausea [Recovering/Resolving]
  - Dizziness [Recovering/Resolving]
  - Impaired driving ability [Unknown]
